FAERS Safety Report 19373783 (Version 2)
Quarter: 2021Q3

REPORT INFORMATION
  Report Type: Spontaneous
  Country: US (occurrence: US)
  Receive Date: 20210603
  Receipt Date: 20210804
  Transmission Date: 20211014
  Serious: Yes (Disabling, Other)
  Sender: FDA-Public Use
  Company Number: US-REGENERON PHARMACEUTICALS, INC.-2021-56026

PATIENT

DRUGS (5)
  1. EYLEA [Suspect]
     Active Substance: AFLIBERCEPT
     Dosage: 2 MG, RIGHT EYE
     Route: 031
     Dates: start: 20200424, end: 20200424
  2. EYLEA [Suspect]
     Active Substance: AFLIBERCEPT
     Indication: CHOROIDAL NEOVASCULARISATION
     Dosage: 2 MG, LEFT EYE
     Route: 031
     Dates: start: 20200424, end: 20200424
  3. EYLEA [Suspect]
     Active Substance: AFLIBERCEPT
     Dosage: 2MG, LEFT EYE
     Route: 031
     Dates: start: 20210604, end: 20210604
  4. EYLEA [Suspect]
     Active Substance: AFLIBERCEPT
     Dosage: 2 MG, RIGHT EYE
     Route: 031
     Dates: start: 20210604, end: 20210604
  5. EYLEA [Suspect]
     Active Substance: AFLIBERCEPT
     Indication: NEOVASCULAR AGE-RELATED MACULAR DEGENERATION
     Dosage: 2 MG, BOTH EYES
     Route: 031
     Dates: start: 2016

REACTIONS (5)
  - Vision blurred [Unknown]
  - Iritis [Recovered/Resolved]
  - Wrong technique in product usage process [Unknown]
  - Blindness unilateral [Recovered/Resolved]
  - Visual acuity reduced [Recovered/Resolved]

NARRATIVE: CASE EVENT DATE: 20200313
